FAERS Safety Report 10067160 (Version 1)
Quarter: 2014Q2

REPORT INFORMATION
  Report Type: Spontaneous
  Country: US (occurrence: None)
  Receive Date: 20140408
  Receipt Date: 20140408
  Transmission Date: 20141212
  Serious: Yes (Disabling)
  Sender: FDA-Public Use
  Company Number: None

PATIENT
  Age: 39 Year
  Sex: Female
  Weight: 49.9 kg

DRUGS (3)
  1. LEVAQUIN [Suspect]
     Indication: UPPER RESPIRATORY TRACT IRRITATION
     Dosage: 1 PILL ONCE DAILY TAKEN BY MOUTH
     Route: 048
     Dates: start: 20060606, end: 20060610
  2. LEVAQUIN [Suspect]
     Indication: SINUSITIS
     Dosage: 1 PILL ONCE DAILY TAKEN BY MOUTH
     Route: 048
     Dates: start: 20060606, end: 20060610
  3. LEVAQUIN [Suspect]
     Indication: INFECTION PROPHYLAXIS
     Dosage: 1 PILL ONCE DAILY TAKEN BY MOUTH
     Route: 048
     Dates: start: 20060606, end: 20060610

REACTIONS (16)
  - Tendon pain [None]
  - Arthralgia [None]
  - Joint swelling [None]
  - Abasia [None]
  - Amenorrhoea [None]
  - Confusional state [None]
  - Fibromyalgia [None]
  - Sinusitis [None]
  - Pain [None]
  - Neuralgia [None]
  - Back pain [None]
  - Joint dislocation [None]
  - Muscle spasms [None]
  - Intervertebral disc protrusion [None]
  - Intervertebral disc protrusion [None]
  - Connective tissue disorder [None]
